FAERS Safety Report 5495723-X (Version None)
Quarter: 2007Q4

REPORT INFORMATION
  Report Type: 
  Country: None (occurrence: None)
  Receive Date: 20071025
  Receipt Date: 20071015
  Transmission Date: 20080405
  Serious: Yes (Death)
  Sender: FDA-Public Use
  Company Number: JP-NOVOPROD-268430

PATIENT
  Sex: Female

DRUGS (3)
  1. INNOLET R CHU [Suspect]
     Indication: DIABETES MELLITUS
     Route: 058
  2. INNOLET N CHU [Suspect]
     Indication: DIABETES MELLITUS
  3. INNOLET N CHU [Suspect]

REACTIONS (2)
  - HEPATIC FAILURE [None]
  - HYPOGLYCAEMIA [None]
